FAERS Safety Report 6336318-5 (Version None)
Quarter: 2009Q3

REPORT INFORMATION
  Report Type: 
  Country: None (occurrence: None)
  Receive Date: 20090901
  Receipt Date: 20090821
  Transmission Date: 20100115
  Serious: Yes (Hospitalization)
  Sender: FDA-Public Use
  Company Number: DE-AMGEN-US359740

PATIENT
  Age: 57 Year
  Sex: Male

DRUGS (10)
  1. ENBREL [Suspect]
     Indication: PSORIATIC ARTHROPATHY
     Route: 058
     Dates: start: 20070401, end: 20090101
  2. LERCANIDIPINE HYDROCHLORIDE [Concomitant]
     Route: 048
  3. RAMIPRIL [Concomitant]
     Route: 048
  4. CLINDAMYCIN [Concomitant]
     Route: 048
  5. SIMVASTATIN [Concomitant]
     Route: 048
  6. ALLOPURINOL [Concomitant]
     Route: 048
  7. PANTOZOL [Concomitant]
     Route: 048
  8. CEFUROXIME [Concomitant]
     Route: 048
  9. CLEXANE [Concomitant]
     Route: 048
  10. NATRILIX [Concomitant]
     Route: 048

REACTIONS (2)
  - ARTHRITIS BACTERIAL [None]
  - JOINT SURGERY [None]
